FAERS Safety Report 4709550-1 (Version None)
Quarter: 2005Q3

REPORT INFORMATION
  Report Type: 
  Country: None (occurrence: None)
  Receive Date: 20050706
  Receipt Date: 20050623
  Transmission Date: 20060218
  Serious: Yes (Hospitalization)
  Sender: FDA-Public Use
  Company Number: 2005092825

PATIENT
  Sex: Female

DRUGS (3)
  1. FELDENE [Suspect]
     Indication: PAIN
     Dosage: 40 MG (20 MG, 2 IN 1 D), ORAL
     Route: 048
     Dates: start: 20050526, end: 20050531
  2. ZYRTEC [Suspect]
     Indication: URTICARIA
     Dosage: 10 MG (10 MG, 1 IN 1 D)
     Dates: start: 20050101
  3. TANNOSYNT ((UREA-CRESOL-SULFONATE SODIUM) [Suspect]
     Indication: URTICARIA
     Dosage: TOPICAL
     Route: 061
     Dates: start: 20050101

REACTIONS (4)
  - DERMATITIS BULLOUS [None]
  - PHOTOSENSITIVITY REACTION [None]
  - SWELLING FACE [None]
  - URTICARIA [None]
